FAERS Safety Report 16392964 (Version 1)
Quarter: 2019Q2

REPORT INFORMATION
  Report Type: Spontaneous
  Country: CA (occurrence: CA)
  Receive Date: 20190605
  Receipt Date: 20190605
  Transmission Date: 20190711
  Serious: Yes (Other)
  Sender: FDA-Public Use
  Company Number: CA-AUROBINDO-AUR-APL-2019-030663

PATIENT

DRUGS (4)
  1. ESOMEPRAZOLE MAGNESIUM TRIHYDRATE [Concomitant]
     Active Substance: ESOMEPRAZOLE MAGNESIUM
     Indication: PRODUCT USED FOR UNKNOWN INDICATION
     Dosage: 40 MILLIGRAM, ONCE A DAY
     Route: 048
  2. TRAMADOL+PARACETAMOL TABLET [Suspect]
     Active Substance: ACETAMINOPHEN\TRAMADOL
     Indication: BACK PAIN
     Dosage: 6 DOSAGE FORM, ONCE A DAY
     Route: 048
  3. TRAMADOL+PARACETAMOL [Suspect]
     Active Substance: ACETAMINOPHEN\TRAMADOL
     Indication: BACK PAIN
     Dosage: 8 DOSAGE FORM, ONCE A DAY
     Route: 048
  4. TRAMADOL+PARACETAMOL TABLET [Suspect]
     Active Substance: ACETAMINOPHEN\TRAMADOL
     Dosage: 18 DOSAGE FORM, ONCE A DAY
     Route: 048

REACTIONS (9)
  - Abortion spontaneous [Unknown]
  - Diarrhoea [Unknown]
  - Treatment noncompliance [Unknown]
  - Product prescribing error [Unknown]
  - Abdominal pain [Unknown]
  - Off label use [Unknown]
  - Drug dependence [Unknown]
  - Nonspecific reaction [Unknown]
  - Exposure during pregnancy [Unknown]
